FAERS Safety Report 8151765-7 (Version None)
Quarter: 2012Q1

REPORT INFORMATION
  Report Type: 
  Country: None (occurrence: None)
  Receive Date: 20120221
  Receipt Date: 20120207
  Transmission Date: 20120608
  Serious: No
  Sender: FDA-Public Use
  Company Number: US-BIOGENIDEC-2012BI005063

PATIENT
  Age: 47 Year
  Sex: Female

DRUGS (3)
  1. AVONEX [Concomitant]
     Route: 030
     Dates: start: 20110601
  2. AVONEX [Concomitant]
     Indication: MULTIPLE SCLEROSIS
     Route: 030
  3. TYSABRI [Suspect]
     Indication: MULTIPLE SCLEROSIS
     Route: 042
     Dates: start: 20110726

REACTIONS (3)
  - DIARRHOEA [None]
  - HEADACHE [None]
  - NAUSEA [None]
